FAERS Safety Report 9271251 (Version 1)
Quarter: 2013Q2

REPORT INFORMATION
  Report Type: Spontaneous
  Country: US (occurrence: US)
  Receive Date: 20130506
  Receipt Date: 20130506
  Transmission Date: 20140414
  Serious: Yes (Congenital Anomaly, Other)
  Sender: FDA-Public Use
  Company Number: US-ELI_LILLY_AND_COMPANY-US201304008023

PATIENT
  Sex: 0

DRUGS (6)
  1. PROZAC [Suspect]
     Dosage: 1 DF, UNKNOWN
     Route: 064
  2. CELEXA [Concomitant]
     Dosage: 1 DF, UNKNOWN
     Route: 064
  3. KLONOPIN [Concomitant]
     Dosage: 1 DF, UNKNOWN
     Route: 064
  4. PHENERGAN [Concomitant]
     Dosage: 1 DF, UNKNOWN
     Route: 064
  5. TRAZODONE [Concomitant]
     Dosage: 50 MG, OTHER
     Route: 064
  6. TRAZODONE [Concomitant]
     Dosage: 200 MG, OTHER
     Route: 064

REACTIONS (4)
  - Congenital pulmonary valve disorder [Unknown]
  - Atrial septal defect [Unknown]
  - Respiratory failure [Unknown]
  - Foetal exposure during pregnancy [Unknown]
